FAERS Safety Report 16666367 (Version 2)
Quarter: 2019Q3

REPORT INFORMATION
  Report Type: Spontaneous
  Country: JP (occurrence: JP)
  Receive Date: 20190805
  Receipt Date: 20190814
  Transmission Date: 20191004
  Serious: Yes (Other)
  Sender: FDA-Public Use
  Company Number: JP-ROCHE-2368475

PATIENT
  Age: 10 Year
  Sex: Female

DRUGS (4)
  1. MONTELUKAST [Concomitant]
     Active Substance: MONTELUKAST SODIUM
     Indication: ASTHMA
     Route: 065
  2. FLUTICASONE PROPIONATE;SALMETEROL [Concomitant]
     Indication: ASTHMA
     Dosage: UNK DF, UNK
     Route: 065
  3. XOLAIR [Suspect]
     Active Substance: OMALIZUMAB
     Indication: ASTHMA
     Route: 058
     Dates: start: 201807
  4. THEOPHYLLINE [Concomitant]
     Active Substance: THEOPHYLLINE ANHYDROUS
     Indication: ASTHMA
     Route: 065
     Dates: end: 201812

REACTIONS (2)
  - Asthma [Recovered/Resolved]
  - Pneumonia mycoplasmal [Unknown]

NARRATIVE: CASE EVENT DATE: 201903
